FAERS Safety Report 13580882 (Version 2)
Quarter: 2017Q2

REPORT INFORMATION
  Report Type: Spontaneous
  Country: ES (occurrence: ES)
  Receive Date: 20170525
  Receipt Date: 20170619
  Transmission Date: 20170830
  Serious: Yes (Hospitalization, Other)
  Sender: FDA-Public Use
  Company Number: ES-SA-2017SA089310

PATIENT
  Age: 38 Year
  Sex: Male
  Weight: 74 kg

DRUGS (8)
  1. PROPANOLOL [Concomitant]
     Active Substance: PROPRANOLOL HYDROCHLORIDE
  2. FOSFOMYCIN [Concomitant]
     Active Substance: FOSFOMYCIN
     Indication: URINARY TRACT INFECTION
  3. BROMAZEPAM [Concomitant]
     Active Substance: BROMAZEPAM
  4. CIPROFLOXACIN. [Concomitant]
     Active Substance: CIPROFLOXACIN
     Indication: URINARY TRACT INFECTION
  5. LEMTRADA [Suspect]
     Active Substance: ALEMTUZUMAB
     Indication: RELAPSING-REMITTING MULTIPLE SCLEROSIS
     Dosage: 5 DIAS, A?O 1; 3 DIAS, A?O 2
     Route: 041
     Dates: start: 201602, end: 20160219
  6. LEMTRADA [Suspect]
     Active Substance: ALEMTUZUMAB
     Indication: RELAPSING-REMITTING MULTIPLE SCLEROSIS
     Dosage: 5 DIAS, A?O 1; 3 DIAS, A?O 2
     Route: 041
     Dates: start: 20150216, end: 20150220
  7. AMOXICILLIN. [Concomitant]
     Active Substance: AMOXICILLIN
     Indication: URINARY TRACT INFECTION
  8. CEFUROXIME. [Concomitant]
     Active Substance: CEFUROXIME
     Indication: URINARY TRACT INFECTION

REACTIONS (3)
  - Primary hyperthyroidism [Recovered/Resolved]
  - Haemoglobin decreased [Recovering/Resolving]
  - Haemolytic anaemia [Recovering/Resolving]

NARRATIVE: CASE EVENT DATE: 20170224
